FAERS Safety Report 13994096 (Version 3)
Quarter: 2018Q1

REPORT INFORMATION
  Report Type: Spontaneous
  Country: US (occurrence: US)
  Receive Date: 20170920
  Receipt Date: 20180125
  Transmission Date: 20180508
  Serious: Yes (Hospitalization)
  Sender: FDA-Public Use
  Company Number: US-JNJFOC-20170918996

PATIENT
  Age: 53 Year
  Sex: Male

DRUGS (13)
  1. ISOSORBIDE. [Concomitant]
     Active Substance: ISOSORBIDE
     Indication: CARDIAC DISORDER
     Route: 065
     Dates: start: 2014
  2. CLOPIDOGREL [Concomitant]
     Active Substance: CLOPIDOGREL BISULFATE
     Indication: CARDIAC DISORDER
     Route: 065
     Dates: start: 1990
  3. ZETIA [Concomitant]
     Active Substance: EZETIMIBE
     Indication: BLOOD CHOLESTEROL INCREASED
     Route: 065
     Dates: start: 2007
  4. HYDROCODONE [Concomitant]
     Active Substance: HYDROCODONE
     Indication: PAIN
     Route: 065
     Dates: start: 201503
  5. CARVEDILOL. [Concomitant]
     Active Substance: CARVEDILOL
     Indication: HYPERTENSION
     Route: 065
     Dates: start: 2007
  6. ATORVASTATIN [Concomitant]
     Active Substance: ATORVASTATIN
     Indication: BLOOD CHOLESTEROL INCREASED
     Route: 065
     Dates: start: 2007
  7. CAPTORIL [Concomitant]
     Active Substance: CAPTOPRIL
     Indication: BLOOD CHOLESTEROL INCREASED
     Route: 065
     Dates: start: 2007
  8. INVOKANA [Suspect]
     Active Substance: CANAGLIFLOZIN
     Indication: TYPE 2 DIABETES MELLITUS
     Dosage: 150 TO 1000MG
     Route: 048
     Dates: start: 20150309, end: 20150602
  9. ACTOS [Suspect]
     Active Substance: PIOGLITAZONE HYDROCHLORIDE
     Indication: DIABETES MELLITUS
     Route: 065
     Dates: start: 2007, end: 20150602
  10. XANAX [Concomitant]
     Active Substance: ALPRAZOLAM
     Indication: DEPRESSION
     Route: 065
     Dates: start: 2015
  11. GLIPIZIDE. [Suspect]
     Active Substance: GLIPIZIDE
     Indication: DIABETES MELLITUS
     Route: 065
     Dates: start: 201503, end: 20150602
  12. LASIX [Concomitant]
     Active Substance: FUROSEMIDE
     Indication: CARDIAC DISORDER
     Route: 065
     Dates: start: 1990
  13. INVOKAMET [Suspect]
     Active Substance: CANAGLIFLOZIN\METFORMIN HYDROCHLORIDE
     Indication: TYPE 2 DIABETES MELLITUS
     Dosage: 150-1000MG
     Route: 048
     Dates: start: 20150309, end: 20150602

REACTIONS (3)
  - Chest pain [Recovered/Resolved]
  - Acute kidney injury [Recovering/Resolving]
  - Dizziness [Recovering/Resolving]

NARRATIVE: CASE EVENT DATE: 201505
